FAERS Safety Report 17308158 (Version 1)
Quarter: 2020Q1

REPORT INFORMATION
  Report Type: Report from Study
  Country: US (occurrence: US)
  Receive Date: 20200123
  Receipt Date: 20200123
  Transmission Date: 20200409
  Serious: Yes (Life-Threatening, Hospitalization, Other)
  Sender: FDA-Public Use
  Company Number: US-ALEXION-A202000510

PATIENT
  Sex: Male

DRUGS (2)
  1. SOLIRIS [Suspect]
     Active Substance: ECULIZUMAB
     Indication: MYASTHENIA GRAVIS
     Dosage: 1200 MG, EVERY OTHER WEEK
     Route: 042
  2. FENTANYL. [Suspect]
     Active Substance: FENTANYL
     Indication: PAIN
     Dosage: UNK
     Route: 065

REACTIONS (6)
  - Respiratory disorder [Unknown]
  - Pneumonia [Recovered/Resolved]
  - Medical induction of coma [Unknown]
  - Pain [Unknown]
  - Myasthenia gravis [Unknown]
  - Tooth loss [Unknown]

NARRATIVE: CASE EVENT DATE: 20191031
